FAERS Safety Report 5816374-0 (Version None)
Quarter: 2008Q3

REPORT INFORMATION
  Report Type: 
  Country: None (occurrence: None)
  Receive Date: 20080721
  Receipt Date: 20070608
  Transmission Date: 20090109
  Serious: No
  Sender: FDA-Public Use
  Company Number: US-BAUSCH-2008BL001193

PATIENT
  Sex: Female

DRUGS (2)
  1. OPCON-A [Suspect]
     Indication: OCULAR HYPERAEMIA
     Route: 047
  2. OPCON-A [Suspect]
     Indication: EYE PRURITUS
     Route: 047

REACTIONS (5)
  - CONDITION AGGRAVATED [None]
  - EYE PAIN [None]
  - EYE PRURITUS [None]
  - OCULAR HYPERAEMIA [None]
  - PHARMACEUTICAL PRODUCT COMPLAINT [None]
